FAERS Safety Report 24584642 (Version 1)
Quarter: 2024Q4

REPORT INFORMATION
  Report Type: Spontaneous
  Country: CN (occurrence: CN)
  Receive Date: 20241106
  Receipt Date: 20241106
  Transmission Date: 20250115
  Serious: Yes (Other)
  Sender: MERCK
  Company Number: CN-009507513-2411CHN000053

PATIENT
  Age: 62 Year
  Sex: Female
  Weight: 70 kg

DRUGS (3)
  1. PEMBROLIZUMAB [Suspect]
     Active Substance: PEMBROLIZUMAB
     Indication: Pericardial mesothelioma malignant
     Dosage: 200 MILLIGRAM, Q3W
     Route: 065
     Dates: start: 20230907, end: 20240119
  2. PEMETREXED [Suspect]
     Active Substance: PEMETREXED
     Indication: Pericardial mesothelioma malignant
     Dosage: 500 MILLIGRAM/SQ. METER, Q3W
     Route: 065
     Dates: start: 20230907, end: 20240119
  3. CARBOPLATIN [Suspect]
     Active Substance: CARBOPLATIN
     Indication: Pericardial mesothelioma malignant
     Dosage: AUC WAS 5, EVERY 3 WEEKS (Q3W)
     Route: 065
     Dates: start: 20230907, end: 20240119

REACTIONS (5)
  - Myelosuppression [Unknown]
  - Nausea [Unknown]
  - Vomiting [Unknown]
  - Gastrointestinal disorder [Unknown]
  - Off label use [Unknown]

NARRATIVE: CASE EVENT DATE: 20230907
